FAERS Safety Report 6114461-3 (Version None)
Quarter: 2009Q1

REPORT INFORMATION
  Report Type: 
  Country: None (occurrence: None)
  Receive Date: 20090313
  Receipt Date: 20090305
  Transmission Date: 20090719
  Serious: Yes (Hospitalization, Other)
  Sender: FDA-Public Use
  Company Number: US-AMGEN-QUU337103

PATIENT
  Sex: Female

DRUGS (1)
  1. ENBREL [Suspect]
     Indication: JUVENILE ARTHRITIS
     Route: 058
     Dates: start: 19990601

REACTIONS (4)
  - HOSPITALISATION [None]
  - INJECTION SITE IRRITATION [None]
  - ROAD TRAFFIC ACCIDENT [None]
  - SURGERY [None]
